FAERS Safety Report 12661452 (Version 1)
Quarter: 2016Q3

REPORT INFORMATION
  Report Type: Report from Study
  Country: SD (occurrence: SD)
  Receive Date: 20160817
  Receipt Date: 20160817
  Transmission Date: 20161109
  Serious: Yes (Death, Other)
  Sender: FDA-Public Use
  Company Number: PHHY2015SD054084

PATIENT
  Age: 53 Year
  Sex: Female

DRUGS (2)
  1. GLIVEC [Suspect]
     Active Substance: IMATINIB MESYLATE
     Indication: GASTROINTESTINAL STROMAL TUMOUR
     Dosage: 400 MG, UNK
     Route: 065
  2. GLIVEC [Suspect]
     Active Substance: IMATINIB MESYLATE
     Dosage: 600 MG, UNK
     Route: 065

REACTIONS (3)
  - Sudden death [Fatal]
  - Metastases to abdominal cavity [Unknown]
  - Metastases to pelvis [Unknown]

NARRATIVE: CASE EVENT DATE: 20160808
